FAERS Safety Report 19969682 (Version 1)
Quarter: 2021Q4

REPORT INFORMATION
  Report Type: Spontaneous
  Country: CN (occurrence: CN)
  Receive Date: 20211019
  Receipt Date: 20211019
  Transmission Date: 20220303
  Serious: Yes (Other)
  Sender: FDA-Public Use
  Company Number: CN-PFIZER INC-202101343238

PATIENT
  Age: 91 Year
  Sex: Male

DRUGS (2)
  1. FLUCONAZOLE [Suspect]
     Active Substance: FLUCONAZOLE
     Indication: Infection
     Dosage: 0.2 G, 1X/DAY
     Route: 041
     Dates: start: 20211004, end: 20211007
  2. HERBALS [Suspect]
     Active Substance: HERBALS
     Indication: Infection
     Dosage: 50 ML, 1X/DAY
     Route: 041
     Dates: start: 20211007, end: 20211007

REACTIONS (1)
  - Rash [Recovered/Resolved]

NARRATIVE: CASE EVENT DATE: 20211007
